FAERS Safety Report 7361270-3 (Version None)
Quarter: 2011Q1

REPORT INFORMATION
  Report Type: 
  Country: None (occurrence: None)
  Receive Date: 20110318
  Receipt Date: 20110310
  Transmission Date: 20110831
  Serious: Yes (Hospitalization)
  Sender: FDA-Public Use
  Company Number: A0744756A

PATIENT
  Age: 56 Year
  Sex: Female
  Weight: 102.7 kg

DRUGS (6)
  1. ATENOLOL [Concomitant]
     Dates: start: 20050708, end: 20051123
  2. MICRONASE [Concomitant]
  3. AVANDAMET [Suspect]
     Route: 048
  4. ACTOS [Concomitant]
     Dates: start: 20030101
  5. AVANDIA [Suspect]
     Route: 048
  6. METFORMIN HCL [Concomitant]
     Dates: start: 20050101

REACTIONS (2)
  - MYOCARDIAL INFARCTION [None]
  - CORONARY ARTERIAL STENT INSERTION [None]
